FAERS Safety Report 8364745-3 (Version None)
Quarter: 2012Q2

REPORT INFORMATION
  Report Type: 
  Country: None (occurrence: None)
  Receive Date: 20120516
  Receipt Date: 20120508
  Transmission Date: 20120825
  Serious: Yes (Hospitalization)
  Sender: FDA-Public Use
  Company Number: NL-ROCHE-1066599

PATIENT
  Sex: Female

DRUGS (6)
  1. CLONIDINE [Concomitant]
  2. HERCEPTIN [Suspect]
     Indication: PRODUCT USED FOR UNKNOWN INDICATION
  3. BLINDED CANDESARTAN [Suspect]
     Indication: PRODUCT USED FOR UNKNOWN INDICATION
     Route: 048
     Dates: start: 20110117
  4. OMEPRAZOLE [Concomitant]
     Dates: start: 20120101
  5. VEMURAFENIB [Suspect]
     Indication: PRODUCT USED FOR UNKNOWN INDICATION
     Dates: start: 20120301, end: 20120429
  6. TAMOXIFEN CITRATE [Concomitant]
     Dates: start: 20110101

REACTIONS (2)
  - PYREXIA [None]
  - MALAISE [None]
